FAERS Safety Report 23944016 (Version 2)
Quarter: 2025Q4

REPORT INFORMATION
  Report Type: Spontaneous
  Country: AU (occurrence: AU)
  Receive Date: 20240606
  Receipt Date: 20251125
  Transmission Date: 20260118
  Serious: Yes (Hospitalization, Other)
  Sender: SANDOZ
  Company Number: AU-MLMSERVICE-20230925-4558832-1

PATIENT
  Age: 33 Year
  Sex: Female

DRUGS (12)
  1. AMOXICILLIN [Suspect]
     Active Substance: AMOXICILLIN
     Indication: Systemic lupus erythematosus
     Dosage: 50 MG, QD
     Route: 048
     Dates: start: 201705, end: 2017
  2. CIPROFLOXACIN HYDROCHLORIDE [Suspect]
     Active Substance: CIPROFLOXACIN HYDROCHLORIDE
     Indication: Systemic lupus erythematosus
     Dosage: 50 MG, QD
     Route: 048
     Dates: start: 201705, end: 2017
  3. CEPHALEXIN [Suspect]
     Active Substance: CEPHALEXIN
     Indication: Systemic lupus erythematosus
     Dosage: 50 MG, QD
     Route: 048
     Dates: start: 201705, end: 2017
  4. GENTAMICIN SULFATE [Suspect]
     Active Substance: GENTAMICIN SULFATE
     Indication: Systemic lupus erythematosus
     Dosage: 50 MG, QD
     Route: 048
     Dates: start: 201705, end: 2017
  5. METRONIDAZOLE [Suspect]
     Active Substance: METRONIDAZOLE
     Indication: Systemic lupus erythematosus
     Dosage: 50 MG, QD
     Route: 048
     Dates: start: 201705, end: 2017
  6. AZATHIOPRINE [Concomitant]
     Active Substance: AZATHIOPRINE
     Indication: Systemic lupus erythematosus
     Dosage: 50 MG, QD
     Route: 065
     Dates: end: 2017
  7. CORTICOSTEROID NOS [Concomitant]
     Active Substance: CORTICOSTEROID NOS
     Indication: Product used for unknown indication
     Dosage: UNK
     Route: 065
  8. CYCLOPHOSPHAMIDE [Concomitant]
     Active Substance: CYCLOPHOSPHAMIDE
     Indication: Product used for unknown indication
     Dosage: UNK
     Route: 065
  9. HYDROXYCHLOROQUINE SULFATE [Concomitant]
     Active Substance: HYDROXYCHLOROQUINE SULFATE
     Indication: Systemic lupus erythematosus
     Dosage: 400 MG, QD
     Route: 065
     Dates: end: 2017
  10. PERINDOPRIL [Concomitant]
     Active Substance: PERINDOPRIL
     Indication: Product used for unknown indication
     Dosage: UNK
     Route: 065
     Dates: end: 2017
  11. PREDNISOLONE [Concomitant]
     Active Substance: PREDNISOLONE
     Indication: Systemic lupus erythematosus
     Dosage: 10 MG
     Route: 065
  12. PREDNISOLONE [Concomitant]
     Active Substance: PREDNISOLONE
     Dosage: 7.5 MG, QD
     Route: 065

REACTIONS (12)
  - Glomerulonephritis [Unknown]
  - Hyperkalaemia [Unknown]
  - Hypertension [Unknown]
  - Hypoalbuminaemia [Unknown]
  - Metabolic acidosis [Unknown]
  - Oliguria [Unknown]
  - Peripheral swelling [Unknown]
  - Renal failure [Unknown]
  - Renal tubular necrosis [Unknown]
  - Tachycardia [Unknown]
  - Diarrhoea [Recovered/Resolved]
  - Vomiting [Unknown]

NARRATIVE: CASE EVENT DATE: 20170101
